FAERS Safety Report 8403073-4 (Version None)
Quarter: 2012Q2

REPORT INFORMATION
  Report Type: 
  Country: None (occurrence: None)
  Receive Date: 20120601
  Receipt Date: 20120523
  Transmission Date: 20120825
  Serious: Yes (Other)
  Sender: FDA-Public Use
  Company Number: US-VERTEX PHARMACEUTICALS INC.-AE-2012-007717

PATIENT
  Age: 59 Year
  Sex: Female

DRUGS (3)
  1. RIBAVIRIN [Concomitant]
     Indication: HEPATITIS C
     Dates: start: 20111109, end: 20111130
  2. INCIVEK [Suspect]
     Indication: HEPATITIS C
     Route: 048
     Dates: start: 20111109, end: 20111130
  3. PEGASYS [Concomitant]
     Indication: HEPATITIS C
     Dates: start: 20111109, end: 20111130

REACTIONS (7)
  - OCULAR ICTERUS [None]
  - OEDEMA PERIPHERAL [None]
  - SWELLING FACE [None]
  - WEIGHT INCREASED [None]
  - DYSPNOEA [None]
  - HEPATIC CIRRHOSIS [None]
  - FATIGUE [None]
